FAERS Safety Report 6317768-X (Version None)
Quarter: 2009Q3

REPORT INFORMATION
  Report Type: 
  Country: None (occurrence: None)
  Receive Date: 20090821
  Receipt Date: 20090811
  Transmission Date: 20100115
  Serious: Yes (Life-Threatening, Hospitalization)
  Sender: FDA-Public Use
  Company Number: JP-PFIZER INC-2009163786

PATIENT
  Age: 66 Year

DRUGS (9)
  1. SUNITINIB MALATE [Suspect]
     Dosage: UNK
     Route: 048
     Dates: start: 20081126, end: 20090801
  2. EUGLUCON [Concomitant]
     Route: 048
  3. NORVASC [Concomitant]
     Route: 048
  4. ALL OTHER THERAPEUTIC PRODUCTS [Concomitant]
     Route: 048
  5. PENTAZOCINE LACTATE [Concomitant]
     Dosage: 15 MG, 1X/DAY
     Route: 042
     Dates: start: 20081126, end: 20081126
  6. ATARAX [Concomitant]
     Dosage: 25 MG, 1X/DAY
     Dates: start: 20081126, end: 20081126
  7. PRIMPERAN [Concomitant]
     Route: 042
     Dates: start: 20081130, end: 20081130
  8. BLOPRESS [Concomitant]
     Dosage: UNK
     Route: 048
     Dates: start: 20081203
  9. OXYCONTIN [Concomitant]
     Dosage: 10 MG, 2X/DAY
     Route: 048
     Dates: start: 20081203

REACTIONS (3)
  - AORTIC DISSECTION [None]
  - PLATELET COUNT DECREASED [None]
  - WHITE BLOOD CELL COUNT DECREASED [None]
